FAERS Safety Report 12345984 (Version 2)
Quarter: 2016Q2

REPORT INFORMATION
  Report Type: Spontaneous
  Country: FR (occurrence: FR)
  Receive Date: 20160509
  Receipt Date: 20160603
  Transmission Date: 20160815
  Serious: Yes (Hospitalization)
  Sender: FDA-Public Use
  Company Number: PHHY2016FR059366

PATIENT
  Age: 79 Year
  Sex: Female

DRUGS (3)
  1. SOLU-MEDROL [Suspect]
     Active Substance: METHYLPREDNISOLONE SODIUM SUCCINATE
     Indication: BILE DUCT CANCER
     Dosage: 60 MG, UNK
     Route: 042
     Dates: start: 20160330, end: 20160330
  2. ZOPHREN [Suspect]
     Active Substance: ONDANSETRON
     Indication: BILE DUCT CANCER
     Dosage: 8 MG, UNK
     Route: 048
     Dates: start: 20160330, end: 20160330
  3. OXALIPLATINE [Suspect]
     Active Substance: OXALIPLATIN
     Indication: BILE DUCT CANCER
     Dosage: 180 MG, UNK
     Route: 042
     Dates: start: 20160330, end: 20160330

REACTIONS (3)
  - Pruritus [Recovered/Resolved]
  - Chills [Recovered/Resolved]
  - Neck pain [Recovered/Resolved]

NARRATIVE: CASE EVENT DATE: 20160330
